FAERS Safety Report 26147430 (Version 1)
Quarter: 2025Q4

REPORT INFORMATION
  Report Type: Spontaneous
  Country: EU (occurrence: EU)
  Receive Date: 20251211
  Receipt Date: 20251211
  Transmission Date: 20260119
  Serious: Yes (Other)
  Sender: UCB
  Company Number: None

PATIENT
  Age: 32 Year
  Weight: 68 kg

DRUGS (2)
  1. LACOSAMIDE [Suspect]
     Active Substance: LACOSAMIDE
     Indication: Epilepsy
     Dosage: 200MG X2/J
  2. LAMOTRIGINE [Suspect]
     Active Substance: LAMOTRIGINE
     Indication: Epilepsy
     Dosage: 300MG X2/J

REACTIONS (2)
  - Cholestasis [Not Recovered/Not Resolved]
  - Circulating anticoagulant [Not Recovered/Not Resolved]
